FAERS Safety Report 7175553-3 (Version None)
Quarter: 2010Q4

REPORT INFORMATION
  Report Type: 
  Country: None (occurrence: None)
  Receive Date: 20101220
  Receipt Date: 20100320
  Transmission Date: 20110411
  Serious: No
  Sender: FDA-Public Use
  Company Number: US-AMGEN-TCS401112

PATIENT

DRUGS (3)
  1. ENBREL [Suspect]
     Indication: JUVENILE ARTHRITIS
     Dosage: 50 MG, QWK
     Route: 058
     Dates: start: 20051203
  2. METHOTREXATE [Concomitant]
     Dosage: 25 MG, QWK
     Route: 058
     Dates: start: 20050101
  3. VACCINES [Concomitant]

REACTIONS (5)
  - ARTHRALGIA [None]
  - JOINT SWELLING [None]
  - JUVENILE ARTHRITIS [None]
  - MIGRAINE [None]
  - VACCINATION COMPLICATION [None]
